FAERS Safety Report 4425417-0 (Version None)
Quarter: 2004Q4

REPORT INFORMATION
  Report Type: 
  Country: None (occurrence: None)
  Receive Date: 20040813
  Receipt Date: 20040810
  Transmission Date: 20050328
  Serious: Yes (Life-Threatening)
  Sender: FDA-Public Use
  Company Number: FR-GLAXOSMITHKLINE-B0342124A

PATIENT
  Age: 70 Year
  Sex: Male

DRUGS (10)
  1. AUGMENTIN '125' [Suspect]
     Indication: LUNG DISORDER
     Dosage: 3G PER DAY
     Route: 042
  2. FRAXIPARINE [Suspect]
     Route: 058
     Dates: start: 20040403, end: 20040418
  3. IMMUNE GLOBULIN INTRAVENOUS (HUMAN) [Suspect]
     Indication: HUMORAL IMMUNE DEFECT
     Dosage: 10G PER DAY
     Route: 042
     Dates: start: 20040407, end: 20040416
  4. FLAGYL [Suspect]
     Indication: LUNG DISORDER
     Dosage: 2UNIT PER DAY
     Route: 048
  5. TPN [Suspect]
     Route: 042
     Dates: start: 20040415
  6. TOPLEXIL [Concomitant]
     Route: 048
  7. DIFFU K [Concomitant]
     Route: 048
  8. ACTONEL [Concomitant]
     Route: 048
  9. PREVISCAN [Concomitant]
     Route: 048
  10. ALBUMIN (HUMAN) [Concomitant]
     Route: 065

REACTIONS (6)
  - BRONCHOSPASM [None]
  - CHILLS [None]
  - HYPOTENSION [None]
  - NAUSEA [None]
  - PYREXIA [None]
  - VOMITING [None]
